FAERS Safety Report 20387637 (Version 1)
Quarter: 2022Q1

REPORT INFORMATION
  Report Type: Spontaneous
  Country: US (occurrence: US)
  Receive Date: 20220127
  Receipt Date: 20220127
  Transmission Date: 20220424
  Serious: No
  Sender: FDA-Public Use
  Company Number: US-ALLERGAN-2116800US

PATIENT
  Age: 41 Year
  Sex: Female

DRUGS (2)
  1. BOTOX [Interacting]
     Active Substance: ONABOTULINUMTOXINA
     Indication: Migraine
     Dosage: UNK, SINGLE
     Dates: start: 20210423, end: 20210423
  2. MODERNA COVID-19 VACCINE [Interacting]
     Active Substance: ELASOMERAN
     Indication: COVID-19 immunisation
     Dosage: UNK UNK, SINGLE
     Dates: start: 20210419, end: 20210419

REACTIONS (4)
  - Periorbital swelling [Unknown]
  - Swelling face [Unknown]
  - Swelling [Unknown]
  - Drug interaction [Unknown]
